APPROVED DRUG PRODUCT: PRAMIPEXOLE DIHYDROCHLORIDE
Active Ingredient: PRAMIPEXOLE DIHYDROCHLORIDE
Strength: 3.75MG
Dosage Form/Route: TABLET, EXTENDED RELEASE;ORAL
Application: A203615 | Product #002 | TE Code: AB
Applicant: ACTAVIS ELIZABETH LLC AN INDIRECT WHOLLY OWNED SUB OF TEVA PHARMACEUTICALS USA INC
Approved: Jan 3, 2017 | RLD: No | RS: No | Type: RX